FAERS Safety Report 19695472 (Version 1)
Quarter: 2021Q3

REPORT INFORMATION
  Report Type: Spontaneous
  Country: CN (occurrence: CN)
  Receive Date: 20210812
  Receipt Date: 20210812
  Transmission Date: 20211014
  Serious: Yes (Hospitalization)
  Sender: FDA-Public Use
  Company Number: CN-CUMBERLAND-2021-CN-000001

PATIENT
  Age: 12 Year
  Sex: Male

DRUGS (5)
  1. METHOTREXATE. [Suspect]
     Active Substance: METHOTREXATE
  2. MYCOPHENOLATE MOFETIL. [Concomitant]
     Active Substance: MYCOPHENOLATE MOFETIL
  3. CYCLOSPORINE A [Concomitant]
     Active Substance: CYCLOSPORINE
  4. RITUXIMAB. [Concomitant]
     Active Substance: RITUXIMAB
     Dosage: RECEIVED ONE DOSE OF RITUXIMAB ON DAY +43
  5. METHYLPREDNISOLONE. [Concomitant]
     Active Substance: METHYLPREDNISOLONE

REACTIONS (2)
  - Epstein-Barr virus test positive [Recovered/Resolved]
  - Graft versus host disease [Recovered/Resolved]
